FAERS Safety Report 23061057 (Version 6)
Quarter: 2024Q3

REPORT INFORMATION
  Report Type: Report from Study
  Country: US (occurrence: US)
  Receive Date: 20231013
  Receipt Date: 20240705
  Transmission Date: 20241017
  Serious: No
  Sender: ACADIA PHARMACEUTICALS
  Company Number: US-ACADIA PHARMACEUTICALS INC.-ACA-2023-TRF-004243

PATIENT
  Age: 8 Year
  Sex: Female

DRUGS (4)
  1. DAYBUE [Suspect]
     Active Substance: TROFINETIDE
     Indication: Rett syndrome
     Dosage: 15 MILLILITER, BID
     Route: 048
     Dates: start: 20230915
  2. DAYBUE [Suspect]
     Active Substance: TROFINETIDE
     Dosage: 20 MILLILITER, BID
     Route: 048
     Dates: start: 20230918
  3. DAYBUE [Suspect]
     Active Substance: TROFINETIDE
     Dosage: 40 MILLILITER, BID
     Route: 048
  4. DAYBUE [Suspect]
     Active Substance: TROFINETIDE
     Dosage: 40 MILLILITER, BID
     Route: 048

REACTIONS (13)
  - Retching [Not Recovered/Not Resolved]
  - Refusal of treatment by patient [Not Recovered/Not Resolved]
  - Product use complaint [Not Recovered/Not Resolved]
  - Influenza [Unknown]
  - Emotional distress [Unknown]
  - Product dose omission issue [Unknown]
  - Abnormal behaviour [Unknown]
  - Underdose [Unknown]
  - Gastroenteritis viral [Unknown]
  - Product dose omission issue [Unknown]
  - Nasopharyngitis [Unknown]
  - Vomiting [Unknown]
  - Vomiting [Unknown]

NARRATIVE: CASE EVENT DATE: 20230915
